FAERS Safety Report 5773896-9 (Version None)
Quarter: 2008Q2

REPORT INFORMATION
  Report Type: 
  Country: None (occurrence: None)
  Receive Date: 20080616
  Receipt Date: 20080604
  Transmission Date: 20081010
  Serious: Yes (Other)
  Sender: FDA-Public Use
  Company Number: B0361264A

PATIENT
  Age: 47 Year
  Sex: Female

DRUGS (6)
  1. PAROXETINE HCL [Suspect]
     Indication: DEPRESSION
     Route: 065
     Dates: start: 20000627, end: 20020528
  2. AMITRIPTYLINE HCL [Concomitant]
     Dates: start: 20010611
  3. ACETAMINOPHEN W/ CODEINE [Concomitant]
  4. ALBUTEROL [Concomitant]
  5. BECLOMETHASONE DIPROPIONATE [Concomitant]
  6. FEMOSTON [Concomitant]

REACTIONS (17)
  - ADVERSE DRUG REACTION [None]
  - CONFUSIONAL STATE [None]
  - CONVULSION [None]
  - DISTURBANCE IN ATTENTION [None]
  - DIZZINESS [None]
  - DYSKINESIA [None]
  - FATIGUE [None]
  - HYPERHIDROSIS [None]
  - INFLUENZA LIKE ILLNESS [None]
  - LETHARGY [None]
  - MEMORY IMPAIRMENT [None]
  - MUSCLE SPASMS [None]
  - NIGHTMARE [None]
  - PARAESTHESIA [None]
  - TREMOR [None]
  - VERTIGO [None]
  - WITHDRAWAL SYNDROME [None]
